FAERS Safety Report 16998698 (Version 3)
Quarter: 2020Q2

REPORT INFORMATION
  Report Type: Spontaneous
  Country: US (occurrence: US)
  Receive Date: 20191105
  Receipt Date: 20200501
  Transmission Date: 20200713
  Serious: No
  Sender: FDA-Public Use
  Company Number: US-RADIUS HEALTH INC.-2019US003459

PATIENT
  Age: 80 Year
  Sex: Female

DRUGS (2)
  1. TYMLOS [Suspect]
     Active Substance: ABALOPARATIDE
     Indication: OSTEOPOROSIS POSTMENOPAUSAL
     Dosage: 80 MCG, QD
     Route: 058
     Dates: start: 20190907
  2. TYMLOS [Suspect]
     Active Substance: ABALOPARATIDE
     Dosage: 80 MCG, QD
     Route: 058

REACTIONS (14)
  - Rash [Recovered/Resolved]
  - Injection site mass [Unknown]
  - Migraine with aura [Unknown]
  - Tachycardia [Unknown]
  - Dizziness [Unknown]
  - Injection site erythema [Unknown]
  - Feeling jittery [Recovered/Resolved]
  - Migraine [Unknown]
  - Arthralgia [Recovered/Resolved]
  - Faeces hard [Unknown]
  - Nausea [Recovered/Resolved]
  - Dyspnoea [Recovered/Resolved]
  - Thermal burn [Unknown]
  - Product dose omission [Unknown]

NARRATIVE: CASE EVENT DATE: 20190907
